FAERS Safety Report 7507565-1 (Version None)
Quarter: 2011Q2

REPORT INFORMATION
  Report Type: 
  Country: None (occurrence: None)
  Receive Date: 20110526
  Receipt Date: 20110519
  Transmission Date: 20111010
  Serious: Yes (Other)
  Sender: FDA-Public Use
  Company Number: US-RB-026218-11

PATIENT
  Age: 31 Year
  Sex: Female

DRUGS (3)
  1. DIPHENHYDRAMINE HCL [Suspect]
     Indication: PRODUCT USED FOR UNKNOWN INDICATION
     Dosage: UNKNOWN DOSING DETAILS
     Route: 065
  2. SUBOXONE [Suspect]
     Indication: PRODUCT USED FOR UNKNOWN INDICATION
     Dosage: SUBOXONE SUBLINGUAL FILM. DOSAGE UNKNOWN.
     Route: 065
  3. XANAX [Suspect]
     Indication: PRODUCT USED FOR UNKNOWN INDICATION
     Dosage: UNKNOWN DOSING DETAILS
     Route: 065

REACTIONS (16)
  - DREAMY STATE [None]
  - THERAPEUTIC RESPONSE UNEXPECTED [None]
  - VISUAL IMPAIRMENT [None]
  - CONFUSIONAL STATE [None]
  - ROAD TRAFFIC ACCIDENT [None]
  - DRUG ABUSE [None]
  - DRUG DEPENDENCE [None]
  - PSYCHOMOTOR HYPERACTIVITY [None]
  - DYSKINESIA [None]
  - INSOMNIA [None]
  - UNDERDOSE [None]
  - EPISTAXIS [None]
  - INTENTIONAL DRUG MISUSE [None]
  - HALLUCINATION, VISUAL [None]
  - UNEVALUABLE EVENT [None]
  - LOGORRHOEA [None]
